FAERS Safety Report 24023575 (Version 2)
Quarter: 2024Q3

REPORT INFORMATION
  Report Type: Report from Study
  Country: US (occurrence: US)
  Receive Date: 20240627
  Receipt Date: 20240701
  Transmission Date: 20241017
  Serious: Yes (Death, Hospitalization)
  Sender: ABBVIE
  Company Number: US-ABBVIE-5817729

PATIENT
  Age: 69 Year
  Sex: Male

DRUGS (1)
  1. CREON [Suspect]
     Active Substance: PANCRELIPASE AMYLASE\PANCRELIPASE LIPASE\PANCRELIPASE PROTEASE
     Indication: Pancreatic failure
     Dosage: FORM STRENGTH: 24000 UNIT ? FREQUENCY TEXT: 3 CAPS EVERY MEAL A, 1 CAP EVERY SNA
     Route: 048
     Dates: start: 202303

REACTIONS (1)
  - Death [Fatal]

NARRATIVE: CASE EVENT DATE: 20240619
